FAERS Safety Report 7245556-9 (Version None)
Quarter: 2011Q1

REPORT INFORMATION
  Report Type: 
  Country: None (occurrence: None)
  Receive Date: 20110126
  Receipt Date: 20110118
  Transmission Date: 20110831
  Serious: Yes (Death)
  Sender: FDA-Public Use
  Company Number: IT-ELI_LILLY_AND_COMPANY-IT201101004594

PATIENT
  Sex: Male
  Weight: 67 kg

DRUGS (5)
  1. HUMULIN                                 /PRI/ [Concomitant]
  2. CISPLATIN [Suspect]
     Indication: NON-SMALL CELL LUNG CANCER
     Dosage: 130 MG, OTHER
     Route: 042
     Dates: start: 20101221
  3. TACHIDOL [Concomitant]
  4. RABEPRAZOLE SODIUM [Concomitant]
  5. PEMETREXED [Suspect]
     Indication: NON-SMALL CELL LUNG CANCER
     Dosage: 880 MG, OTHER
     Route: 042
     Dates: start: 20101221

REACTIONS (1)
  - DEATH [None]
